FAERS Safety Report 14656347 (Version 7)
Quarter: 2022Q2

REPORT INFORMATION
  Report Type: Spontaneous
  Country: US (occurrence: US)
  Receive Date: 20180319
  Receipt Date: 20220613
  Transmission Date: 20220721
  Serious: Yes (Hospitalization, Other)
  Sender: FDA-Public Use
  Company Number: US-PFIZER INC-2018107235

PATIENT
  Age: 51 Year
  Sex: Female
  Weight: 94.35 kg

DRUGS (2)
  1. XELJANZ XR [Suspect]
     Active Substance: TOFACITINIB CITRATE
     Indication: Rheumatoid arthritis
     Dosage: 11 MG, DAILY
     Route: 048
     Dates: start: 2016
  2. XELJANZ XR [Suspect]
     Active Substance: TOFACITINIB CITRATE
     Dosage: 11 MG, DAILY
     Route: 048
     Dates: start: 2014

REACTIONS (11)
  - Clostridium difficile colitis [Recovered/Resolved]
  - Cholecystectomy [Unknown]
  - Ankle fracture [Unknown]
  - Spinal fracture [Unknown]
  - Weight increased [Unknown]
  - Illness [Not Recovered/Not Resolved]
  - Fall [Not Recovered/Not Resolved]
  - Back injury [Not Recovered/Not Resolved]
  - Back pain [Not Recovered/Not Resolved]
  - Product prescribing error [Unknown]
  - Tooth extraction [Unknown]

NARRATIVE: CASE EVENT DATE: 20160901
